FAERS Safety Report 4551169-X (Version None)
Quarter: 2005Q1

REPORT INFORMATION
  Report Type: 
  Country: None (occurrence: None)
  Receive Date: 20050111
  Receipt Date: 20050111
  Transmission Date: 20050727
  Serious: No
  Sender: FDA-Public Use
  Company Number: None

PATIENT
  Sex: Female
  Weight: 117.9352 kg

DRUGS (1)
  1. WARFARIN SODIUM [Suspect]
     Indication: AORTIC VALVE REPLACEMENT
     Dosage: 1 Q DAY

REACTIONS (2)
  - INTERNATIONAL NORMALISED RATIO INCREASED [None]
  - PHARMACEUTICAL PRODUCT COMPLAINT [None]
